FAERS Safety Report 8905678 (Version 2)
Quarter: 2012Q4

REPORT INFORMATION
  Report Type: 
  Country: DE (occurrence: DE)
  Receive Date: 20121109
  Receipt Date: 20121212
  Transmission Date: 20130627
  Serious: Yes (Hospitalization)
  Sender: FDA-Public Use
  Company Number: DE-ARROW-2012-18932

PATIENT
  Age: 76 Year
  Sex: Female

DRUGS (9)
  1. CITALOPRAM HYDROBROMIDE (UNKNOWN) [Suspect]
     Indication: DEPRESSION
     Dosage: 20 mg, daily
     Route: 065
  2. CITALOPRAM HYDROBROMIDE (UNKNOWN) [Suspect]
     Indication: SCHIZOPHRENIA
  3. OLANZAPINE [Concomitant]
     Indication: DEPRESSION
     Dosage: 1.25 mg, daily
     Route: 065
  4. OLANZAPINE [Concomitant]
     Indication: SCHIZOPHRENIA
  5. DONEPEZIL [Concomitant]
     Indication: DEMENTIA ALZHEIMER^S TYPE
     Dosage: 10 mg, daily
     Route: 065
  6. GINGKOMIN [Concomitant]
     Indication: COGNITIVE DISORDER
     Dosage: UNK, unknown
     Route: 065
  7. PREDNISONE [Concomitant]
     Indication: RHEUMATOID ARTHRITIS
     Dosage: UNK, unknown
     Route: 065
  8. METHOTREXATE [Concomitant]
     Indication: RHEUMATOID ARTHRITIS
     Dosage: UNK, unknown
     Route: 065
  9. ATORVASTATIN [Concomitant]
     Indication: DYSLIPIDAEMIA
     Dosage: 1 mg, daily
     Route: 065

REACTIONS (3)
  - Electrocardiogram QT prolonged [Recovered/Resolved]
  - Syncope [Recovered/Resolved]
  - Torsade de pointes [Recovered/Resolved]
